FAERS Safety Report 6411701-8 (Version None)
Quarter: 2009Q4

REPORT INFORMATION
  Report Type: 
  Country: None (occurrence: None)
  Receive Date: 20091023
  Receipt Date: 20091019
  Transmission Date: 20100525
  Serious: Yes (Life-Threatening, Hospitalization)
  Sender: FDA-Public Use
  Company Number: PHHY2009US45203

PATIENT
  Sex: Female
  Weight: 47.9 kg

DRUGS (3)
  1. ERL 080A ERL+TAB [Suspect]
     Indication: RENAL TRANSPLANT
     Dosage: 1020 MG/DAY
     Route: 048
     Dates: start: 20090818
  2. PREDNISONE [Concomitant]
     Indication: RENAL TRANSPLANT
     Dosage: 1 MG, TDD
     Dates: start: 20090821
  3. TACROLIMUS [Concomitant]
     Indication: RENAL TRANSPLANT
     Dosage: 11 MG TDD
     Dates: start: 20090829

REACTIONS (6)
  - DIARRHOEA [None]
  - NAUSEA [None]
  - OESOPHAGEAL CANDIDIASIS [None]
  - OESOPHAGEAL DISORDER [None]
  - SYNCOPE [None]
  - VOMITING [None]
